FAERS Safety Report 4385855-1 (Version None)
Quarter: 2004Q2

REPORT INFORMATION
  Report Type: 
  Country: None (occurrence: None)
  Receive Date: 20040621
  Receipt Date: 20040610
  Transmission Date: 20050107
  Serious: Yes (Hospitalization)
  Sender: FDA-Public Use
  Company Number: 04P-150-0262354-00

PATIENT
  Sex: Female

DRUGS (3)
  1. KALETRA [Suspect]
     Indication: HIV INFECTION
     Dosage: ORAL
     Route: 048
     Dates: start: 20021023
  2. DIDANOSINE [Concomitant]
  3. ZIDOVUDINE W/LAMIVUDINE [Concomitant]

REACTIONS (2)
  - PALPITATIONS [None]
  - PULMONARY EMBOLISM [None]
